FAERS Safety Report 21283373 (Version 5)
Quarter: 2023Q1

REPORT INFORMATION
  Report Type: Spontaneous
  Country: GB (occurrence: GB)
  Receive Date: 20220901
  Receipt Date: 20230323
  Transmission Date: 20230418
  Serious: Yes (Other)
  Sender: FDA-Public Use
  Company Number: GB-MYLANLABS-2021M1058258

PATIENT
  Age: 63 Year
  Sex: Male

DRUGS (1)
  1. CLOZARIL [Suspect]
     Active Substance: CLOZAPINE
     Indication: Schizophrenia
     Dosage: UNK
     Route: 048
     Dates: start: 20010315

REACTIONS (9)
  - Leukocytosis [Not Recovered/Not Resolved]
  - Chronic myelomonocytic leukaemia [Unknown]
  - Acute myeloid leukaemia [Unknown]
  - Red cell distribution width increased [Unknown]
  - Differential white blood cell count abnormal [Unknown]
  - Neutrophilia [Not Recovered/Not Resolved]
  - Red blood cell count decreased [Unknown]
  - Haematocrit decreased [Unknown]
  - Lymphocyte count increased [Unknown]

NARRATIVE: CASE EVENT DATE: 20210831
